FAERS Safety Report 8371275-1 (Version None)
Quarter: 2012Q2

REPORT INFORMATION
  Report Type: 
  Country: None (occurrence: None)
  Receive Date: 20120518
  Receipt Date: 20120515
  Transmission Date: 20120825
  Serious: Yes (Hospitalization)
  Sender: FDA-Public Use
  Company Number: BR-ABBOTT-12P-020-0932161-00

PATIENT
  Sex: Male
  Weight: 54 kg

DRUGS (5)
  1. HUMIRA [Suspect]
     Route: 058
  2. HUMIRA [Suspect]
     Indication: CROHN'S DISEASE
     Dosage: 160 MG
     Route: 058
  3. PANTOPRAZOLE [Concomitant]
     Indication: PROPHYLAXIS AGAINST GASTROINTESTINAL ULCER
     Dosage: 40 MG IN THE MORNING
     Route: 048
  4. HUMIRA [Suspect]
     Dosage: 80 MG
     Route: 058
  5. IMURAN [Concomitant]
     Indication: CROHN'S DISEASE
     Dosage: 50 MG 2 TABLETS DAILY
     Route: 048

REACTIONS (6)
  - ASTHENIA [None]
  - HEADACHE [None]
  - PYREXIA [None]
  - RASH PUSTULAR [None]
  - HYPOTENSION [None]
  - FEELING ABNORMAL [None]
